FAERS Safety Report 21858130 (Version 2)
Quarter: 2023Q1

REPORT INFORMATION
  Report Type: Report from Study
  Country: US (occurrence: US)
  Receive Date: 20230113
  Receipt Date: 20230210
  Transmission Date: 20230418
  Serious: Yes (Hospitalization)
  Sender: FDA-Public Use
  Company Number: US-HORIZON THERAPEUTICS-HZN-2022-009726

PATIENT

DRUGS (2)
  1. RAVICTI [Suspect]
     Active Substance: GLYCEROL PHENYLBUTYRATE
     Indication: Urea cycle disorder
     Dosage: FIRST DOSE
     Route: 065
     Dates: start: 20150129
  2. RAVICTI [Suspect]
     Active Substance: GLYCEROL PHENYLBUTYRATE
     Dosage: DOSE DECREASED TO 5.5 ML (FROM 6CC TO 5.5CC)
     Route: 065

REACTIONS (8)
  - Mental status changes [Unknown]
  - Ataxia [Unknown]
  - Gait disturbance [Unknown]
  - Nasopharyngitis [Unknown]
  - Balance disorder [Unknown]
  - Drug level above therapeutic [Unknown]
  - Treatment noncompliance [Unknown]
  - Amino acid level decreased [Unknown]

NARRATIVE: CASE EVENT DATE: 20220101
